FAERS Safety Report 8070884-7 (Version None)
Quarter: 2012Q1

REPORT INFORMATION
  Report Type: 
  Country: None (occurrence: None)
  Receive Date: 20120125
  Receipt Date: 20120120
  Transmission Date: 20120608
  Serious: Yes (Hospitalization)
  Sender: FDA-Public Use
  Company Number: FR-PFIZER INC-2012016200

PATIENT
  Age: 82 Year
  Sex: Female

DRUGS (9)
  1. AMARYL [Suspect]
     Dosage: 2 MG, UNK
     Route: 048
     Dates: start: 20110817, end: 20111201
  2. CLONAZEPAM [Suspect]
     Dosage: 2.5 MG/ML
     Route: 048
     Dates: start: 20110801, end: 20111201
  3. OFLOXACIN [Suspect]
     Dosage: UNK
     Route: 048
     Dates: start: 20110822, end: 20110901
  4. COLCHICINE [Suspect]
     Dosage: UNK
     Route: 048
     Dates: start: 20110817, end: 20111201
  5. GINKOR FORT [Suspect]
     Dosage: UNK
     Route: 048
     Dates: start: 20111015, end: 20111201
  6. ZESTRIL [Suspect]
     Dosage: 20 MG, UNK
     Route: 048
     Dates: start: 20110801, end: 20111201
  7. ATARAX [Suspect]
     Dosage: UNK
     Route: 048
     Dates: start: 20111015
  8. AMLODIPINE BESYLATE [Suspect]
     Dosage: 5 MG, UNK
     Route: 048
     Dates: start: 20110801, end: 20111201
  9. ACETAMINOPHEN [Suspect]
     Dosage: UNK
     Route: 048
     Dates: start: 20110817, end: 20111201

REACTIONS (4)
  - RENAL FAILURE ACUTE [None]
  - DRUG RASH WITH EOSINOPHILIA AND SYSTEMIC SYMPTOMS [None]
  - ENDOCARDITIS BACTERIAL [None]
  - RASH [None]
